FAERS Safety Report 7351391-3 (Version None)
Quarter: 2011Q1

REPORT INFORMATION
  Report Type: 
  Country: None (occurrence: None)
  Receive Date: 20110314
  Receipt Date: 20110309
  Transmission Date: 20110831
  Serious: Yes (Hospitalization)
  Sender: FDA-Public Use
  Company Number: PHHO2009PL02372

PATIENT
  Sex: Male
  Weight: 97 kg

DRUGS (5)
  1. TASIGNA [Suspect]
     Indication: CHRONIC MYELOID LEUKAEMIA
     Dosage: 800 MG, DAILY
     Route: 048
     Dates: start: 20080731, end: 20080829
  2. TASIGNA [Suspect]
     Dosage: NO TREATMENT RECEIVED
     Dates: start: 20100830, end: 20100924
  3. DIAPREL [Concomitant]
  4. BISOPROLOL FUMARATE [Concomitant]
     Indication: HYPERTENSION
     Dosage: UNK
  5. TASIGNA [Suspect]
     Dosage: UNK
     Route: 048
     Dates: start: 20100925

REACTIONS (9)
  - CORONARY ANGIOPLASTY [None]
  - CORONARY ARTERIAL STENT INSERTION [None]
  - BLOOD CREATINE PHOSPHOKINASE MB INCREASED [None]
  - SUDDEN DEATH [None]
  - BLOOD CREATINE PHOSPHOKINASE INCREASED [None]
  - MYOCARDIAL INFARCTION [None]
  - CHEST PAIN [None]
  - TROPONIN I INCREASED [None]
  - ANGINA PECTORIS [None]
